FAERS Safety Report 9316560 (Version 1)
Quarter: 2013Q2

REPORT INFORMATION
  Report Type: Spontaneous
  Country: US (occurrence: None)
  Receive Date: 20130528
  Receipt Date: 20130528
  Transmission Date: 20140414
  Serious: Yes (Other)
  Sender: FDA-Public Use
  Company Number: None

PATIENT
  Age: 30 Year
  Sex: 0
  Weight: 91.63 kg

DRUGS (2)
  1. TRAMADOL HCL [Suspect]
     Indication: BACK PAIN
     Dates: start: 20130514, end: 20130521
  2. TRAMADOL HCL [Suspect]
     Indication: INTERVERTEBRAL DISC PROTRUSION
     Dates: start: 20130514, end: 20130521

REACTIONS (6)
  - Disorientation [None]
  - Dizziness [None]
  - Nausea [None]
  - Loss of consciousness [None]
  - Tremor [None]
  - Memory impairment [None]
